FAERS Safety Report 14408066 (Version 2)
Quarter: 2018Q1

REPORT INFORMATION
  Report Type: Spontaneous
  Country: CA (occurrence: CA)
  Receive Date: 20180118
  Receipt Date: 20180129
  Transmission Date: 20180509
  Serious: Yes (Other)
  Sender: FDA-Public Use
  Company Number: CA-PFIZER INC-2018009046

PATIENT
  Age: 57 Year
  Sex: Male

DRUGS (1)
  1. METHOTREXATE SODIUM. [Suspect]
     Active Substance: METHOTREXATE SODIUM
     Indication: RHEUMATOID ARTHRITIS
     Dosage: UNK
     Dates: start: 1988

REACTIONS (6)
  - Bowel movement irregularity [Unknown]
  - Impaired quality of life [Unknown]
  - Abdominal pain upper [Unknown]
  - Impaired work ability [Unknown]
  - Diarrhoea [Unknown]
  - Condition aggravated [Unknown]
